FAERS Safety Report 6031312-6 (Version None)
Quarter: 2008Q4

REPORT INFORMATION
  Report Type: 
  Country: None (occurrence: None)
  Receive Date: 20081224
  Receipt Date: 20081016
  Transmission Date: 20090506
  Serious: No
  Sender: FDA-Public Use
  Company Number: US-CVT-080091

PATIENT
  Age: 86 Year
  Sex: Male

DRUGS (2)
  1. RANEXA [Suspect]
     Indication: DRUG USE FOR UNKNOWN INDICATION
     Dosage: 500 MG, BID, ORAL ; 1000 MG, BID, ORAL ; 1000 MG, BID
     Route: 048
     Dates: end: 20081001
  2. RANEXA [Suspect]
     Indication: DRUG USE FOR UNKNOWN INDICATION
     Dosage: 500 MG, BID, ORAL ; 1000 MG, BID, ORAL ; 1000 MG, BID
     Route: 048
     Dates: start: 20081015

REACTIONS (2)
  - DIZZINESS [None]
  - URINE COLOUR ABNORMAL [None]
